FAERS Safety Report 23240085 (Version 2)
Quarter: 2023Q4

REPORT INFORMATION
  Report Type: Report from Study
  Country: DE (occurrence: DE)
  Receive Date: 20231129
  Receipt Date: 20231205
  Transmission Date: 20240110
  Serious: Yes (Hospitalization, Other)
  Sender: FDA-Public Use
  Company Number: DE-UCBSA-2023056095

PATIENT
  Sex: Male

DRUGS (2)
  1. CERTOLIZUMAB PEGOL [Suspect]
     Active Substance: CERTOLIZUMAB PEGOL
     Indication: Psoriatic arthropathy
     Dosage: 200 MILLIGRAM, EV 2 WEEKS(QOW)
     Dates: start: 20201208, end: 20220624
  2. METHOTREXATE SODIUM [Concomitant]
     Active Substance: METHOTREXATE SODIUM
     Indication: Product used for unknown indication
     Dosage: 20 MILLIGRAM, WEEKLY (QW)
     Route: 058
     Dates: start: 20210407

REACTIONS (7)
  - Spinal osteoarthritis [Unknown]
  - Colitis [Unknown]
  - Colorectal adenoma [Unknown]
  - Osteoarthritis [Unknown]
  - Osteoporosis [Unknown]
  - Helicobacter gastritis [Unknown]
  - Oral herpes [Unknown]

NARRATIVE: CASE EVENT DATE: 20220630
